FAERS Safety Report 7068800-X (Version None)
Quarter: 2010Q4

REPORT INFORMATION
  Report Type: 
  Country: None (occurrence: None)
  Receive Date: 20101022
  Receipt Date: 20101022
  Transmission Date: 20110411
  Serious: Yes (Other)
  Sender: FDA-Public Use
  Company Number: None

PATIENT
  Age: 57 Year
  Sex: Female
  Weight: 104.3273 kg

DRUGS (7)
  1. ABILIFY [Suspect]
     Indication: DEPRESSION
     Dosage: 5 MG QD PO
     Route: 048
     Dates: start: 20100801
  2. ABILIFY [Suspect]
     Indication: DEPRESSION
     Dosage: 5 MG QD PO
     Route: 048
     Dates: start: 20100901
  3. BUPROPION HCL [Concomitant]
  4. OMEPRAZOLE [Concomitant]
  5. CITALOPRAM [Concomitant]
  6. BENAZEPRIL/HCTZ [Concomitant]
  7. FEXOFENADINE HCL [Concomitant]

REACTIONS (1)
  - HYPONATRAEMIA [None]
